FAERS Safety Report 12590487 (Version 1)
Quarter: 2016Q3

REPORT INFORMATION
  Report Type: Report from Study
  Country: US (occurrence: US)
  Receive Date: 20160725
  Receipt Date: 20160725
  Transmission Date: 20161109
  Serious: Yes (Hospitalization, Other)
  Sender: FDA-Public Use
  Company Number: US-ASTRAZENECA-2014SE18625

PATIENT
  Age: 807 Month
  Sex: Female
  Weight: 79.8 kg

DRUGS (4)
  1. LOTRIL [Concomitant]
     Active Substance: ENALAPRIL MALEATE
     Indication: HYPERTENSION
     Dosage: 5 - 20 MG. DAILY
     Route: 048
     Dates: start: 1999
  2. HYDROCHLOROTHIAZIDE. [Concomitant]
     Active Substance: HYDROCHLOROTHIAZIDE
     Indication: HYPERTENSION
     Route: 048
     Dates: start: 1999
  3. CRESTOR [Suspect]
     Active Substance: ROSUVASTATIN CALCIUM
     Indication: BLOOD CHOLESTEROL DECREASED
     Route: 048
     Dates: start: 201212, end: 201312
  4. CALCIUM WITH VITAMIN D3 [Concomitant]
     Active Substance: CALCIUM CARBONATE\CHOLECALCIFEROL
     Indication: BONE DISORDER
     Dosage: 1200 MG AND 1000 IU DAILY
     Route: 065
     Dates: start: 2013

REACTIONS (6)
  - Rectal haemorrhage [Recovered/Resolved]
  - Gastrointestinal tract irritation [Recovered/Resolved]
  - Abdominal pain upper [Recovered/Resolved]
  - Vomiting [Recovered/Resolved]
  - Feeling abnormal [Unknown]
  - Colon cancer [Unknown]

NARRATIVE: CASE EVENT DATE: 201312
